FAERS Safety Report 25216333 (Version 1)
Quarter: 2025Q2

REPORT INFORMATION
  Report Type: Other
  Country: US (occurrence: US)
  Receive Date: 20250418
  Receipt Date: 20250418
  Transmission Date: 20250716
  Serious: Yes (Life-Threatening, Hospitalization, Other)
  Sender: MADRIGAL PHARMACEUTICALS
  Company Number: US-MADRIGAL PHARMACEUTICALS, INC-2025REZ4120

PATIENT

DRUGS (2)
  1. REZDIFFRA [Suspect]
     Active Substance: RESMETIROM
     Indication: Metabolic dysfunction-associated steatohepatitis
     Dosage: 80 MILLIGRAM, QD
     Route: 048
     Dates: start: 202408
  2. SOTATERCEPT [Concomitant]
     Active Substance: SOTATERCEPT

REACTIONS (1)
  - Ventricular fibrillation [Recovering/Resolving]
